FAERS Safety Report 25366419 (Version 1)
Quarter: 2025Q2

REPORT INFORMATION
  Report Type: Spontaneous
  Country: AR (occurrence: AR)
  Receive Date: 20250528
  Receipt Date: 20250528
  Transmission Date: 20250716
  Serious: Yes (Disabling, Other)
  Sender: AMGEN
  Company Number: AR-PFIZER INC-202500107785

PATIENT
  Age: 53 Year
  Sex: Female

DRUGS (1)
  1. ENBREL [Suspect]
     Active Substance: ETANERCEPT
     Indication: Rheumatoid arthritis
     Dosage: 50 MG, WEEKLY
     Route: 065
     Dates: start: 20241014, end: 202505

REACTIONS (5)
  - Drug ineffective [Unknown]
  - Blindness [Unknown]
  - Malaise [Unknown]
  - Pallor [Unknown]
  - Nausea [Unknown]
